FAERS Safety Report 10618705 (Version 2)
Quarter: 2015Q1

REPORT INFORMATION
  Report Type: Spontaneous
  Country: DE (occurrence: None)
  Receive Date: 20141125
  Receipt Date: 20150202
  Transmission Date: 20150720
  Serious: Yes (Life-Threatening, Hospitalization, Other)
  Sender: FDA-Public Use
  Company Number: DE-H14001-14-01662

PATIENT
  Age: 26 Year
  Sex: Female
  Weight: 62 kg

DRUGS (7)
  1. SYMBICORT [Concomitant]
     Active Substance: BUDESONIDE\FORMOTEROL FUMARATE DIHYDRATE
  2. LOW MOLECULAR WEIGHT HEPARIN (DALTEPARIN SODIUM) [Concomitant]
  3. PREDNISOLON (PREDNISOLONE) [Concomitant]
  4. BERODUAL (DUOVENT) (FENOTEROL HYDROBROMIDE, IPRATROPIUM BROMIDE) [Concomitant]
  5. CEFUROXIM HIKMA (CEFUROXIME) (1500 MILLIGRAM) (CEFUROXIME) [Suspect]
     Active Substance: CEFUROXIME SODIUM
     Indication: ANTIBIOTIC PROPHYLAXIS
     Route: 042
     Dates: start: 20140704, end: 20140704
  6. MIDAZOLAM [Concomitant]
     Active Substance: MIDAZOLAM\MIDAZOLAM HYDROCHLORIDE
  7. CORTISON (CORTISONE ACETATE) [Concomitant]

REACTIONS (6)
  - Paraesthesia [None]
  - Hypersensitivity [None]
  - PO2 decreased [None]
  - Blood pH decreased [None]
  - PCO2 increased [None]
  - Post-traumatic stress disorder [None]

NARRATIVE: CASE EVENT DATE: 2014
